FAERS Safety Report 5144747-0 (Version None)
Quarter: 2006Q4

REPORT INFORMATION
  Report Type: 
  Country: None (occurrence: None)
  Receive Date: 20061107
  Receipt Date: 20061030
  Transmission Date: 20070319
  Serious: Yes (Hospitalization)
  Sender: FDA-Public Use
  Company Number: JP-JNJFOC-20050806029

PATIENT
  Sex: Female
  Weight: 74 kg

DRUGS (22)
  1. REMICADE [Suspect]
     Route: 042
  2. REMICADE [Suspect]
     Route: 042
  3. REMICADE [Suspect]
     Route: 042
  4. REMICADE [Suspect]
     Indication: RHEUMATOID ARTHRITIS
     Route: 042
  5. METHOTREXATE [Concomitant]
     Indication: RHEUMATOID ARTHRITIS
     Route: 048
  6. RHEUMATREX [Concomitant]
     Route: 048
  7. RHEUMATREX [Concomitant]
     Route: 048
  8. RHEUMATREX [Concomitant]
     Indication: RHEUMATOID ARTHRITIS
     Route: 048
  9. FOLIAMIN [Concomitant]
     Indication: PROPHYLAXIS
     Route: 065
  10. PREDONINE [Concomitant]
     Indication: RHEUMATOID ARTHRITIS
     Route: 048
  11. NORVASC [Concomitant]
     Indication: HYPERTENSION
     Route: 048
  12. ALDACTONE [Concomitant]
     Indication: OEDEMA
     Route: 048
  13. LASIX [Concomitant]
     Indication: OEDEMA
     Route: 065
  14. LANSOPRAZOLE [Concomitant]
     Indication: REFLUX OESOPHAGITIS
     Route: 048
  15. HALCION [Concomitant]
     Indication: INSOMNIA
     Route: 048
  16. BASEN [Concomitant]
     Route: 048
  17. BASEN [Concomitant]
     Indication: DIABETES MELLITUS
     Route: 048
  18. MARZULENE S [Concomitant]
     Indication: GASTRITIS
     Route: 048
  19. LOXONIN [Concomitant]
     Route: 048
  20. LOXONIN [Concomitant]
     Indication: RHEUMATOID ARTHRITIS
     Route: 048
  21. NOVOLIN R [Concomitant]
     Indication: DIABETES MELLITUS
     Dosage: DOSE: 22 UT
     Route: 058
  22. ADRENAL HORMONE PREPARATION [Concomitant]
     Indication: RHEUMATOID ARTHRITIS

REACTIONS (3)
  - INFUSION RELATED REACTION [None]
  - PYREXIA [None]
  - TUBERCULOUS PLEURISY [None]
